FAERS Safety Report 24034872 (Version 2)
Quarter: 2024Q3

REPORT INFORMATION
  Report Type: Spontaneous
  Country: CA (occurrence: CA)
  Receive Date: 20240701
  Receipt Date: 20240821
  Transmission Date: 20241017
  Serious: Yes (Other)
  Sender: PFIZER
  Company Number: CA-PFIZER INC-PV202400084754

PATIENT
  Age: 40 Year
  Sex: Female

DRUGS (2)
  1. RITUXIMAB [Suspect]
     Active Substance: RITUXIMAB
     Indication: Vasculitis
     Dosage: 1 G (TWICE, 14 DAYS APART EVERY 6 MONTHS)
  2. RITUXIMAB [Suspect]
     Active Substance: RITUXIMAB
     Dosage: UNK (100 MG/H, THIRD COURSE)

REACTIONS (7)
  - Cough [Recovered/Resolved]
  - Flushing [Recovered/Resolved]
  - Pruritus [Recovered/Resolved]
  - Eyelid oedema [Recovered/Resolved]
  - Throat irritation [Recovered/Resolved]
  - Off label use [Unknown]
  - Drug effective for unapproved indication [Unknown]
